FAERS Safety Report 10700997 (Version 1)
Quarter: 2015Q1

REPORT INFORMATION
  Report Type: Spontaneous
  Country: FR (occurrence: FR)
  Receive Date: 20150109
  Receipt Date: 20150109
  Transmission Date: 20150721
  Serious: Yes (Hospitalization)
  Sender: FDA-Public Use
  Company Number: FR-PFIZER INC-2015004065

PATIENT
  Age: 45 Year
  Sex: Female

DRUGS (1)
  1. SUTENT [Suspect]
     Active Substance: SUNITINIB MALATE
     Indication: NEOPLASM MALIGNANT
     Dosage: 37.5 MG, 1X/DAY
     Route: 048
     Dates: start: 20130930, end: 20140902

REACTIONS (8)
  - Thyroid function test abnormal [Unknown]
  - Haematotoxicity [Unknown]
  - Psychiatric decompensation [Recovered/Resolved with Sequelae]
  - Depression [Unknown]
  - Disease progression [Unknown]
  - Abdominal pain [Unknown]
  - Neoplasm malignant [Unknown]
  - Palmar-plantar erythrodysaesthesia syndrome [Unknown]

NARRATIVE: CASE EVENT DATE: 20140415
